FAERS Safety Report 4605154-X (Version None)
Quarter: 2005Q1

REPORT INFORMATION
  Report Type: 
  Country: None (occurrence: None)
  Receive Date: 20050217
  Receipt Date: 20041118
  Transmission Date: 20050727
  Serious: No
  Sender: FDA-Public Use
  Company Number: S04-USA-07454-01

PATIENT
  Age: 79 Year
  Sex: Female

DRUGS (7)
  1. NAMENDA [Suspect]
     Indication: DEMENTIA
     Dosage: 2.5 MG QD PO
     Route: 048
     Dates: start: 20040201, end: 20040201
  2. TENORMIN [Concomitant]
  3. EVISTA [Concomitant]
  4. SINEMET [Concomitant]
  5. SEROQUEL [Concomitant]
  6. ASPIRIN [Concomitant]
  7. VITAMIN E [Concomitant]

REACTIONS (2)
  - FLUSHING [None]
  - HEART RATE INCREASED [None]
